APPROVED DRUG PRODUCT: LIDOCAINE HYDROCHLORIDE
Active Ingredient: LIDOCAINE HYDROCHLORIDE
Strength: 1%
Dosage Form/Route: INJECTABLE;INJECTION
Application: A208017 | Product #001 | TE Code: AP
Applicant: SPECTRA MEDICAL DEVICES INC
Approved: Apr 18, 2018 | RLD: No | RS: No | Type: RX